FAERS Safety Report 15611357 (Version 1)
Quarter: 2018Q4

REPORT INFORMATION
  Report Type: Spontaneous
  Country: NL (occurrence: NL)
  Receive Date: 20181113
  Receipt Date: 20181113
  Transmission Date: 20190205
  Serious: Yes (Hospitalization)
  Sender: FDA-Public Use
  Company Number: NL-SUN PHARMACEUTICAL INDUSTRIES LTD-2018RR-190812

PATIENT
  Sex: Female

DRUGS (4)
  1. VENLAFAXINE [Suspect]
     Active Substance: VENLAFAXINE HYDROCHLORIDE
     Indication: ANXIETY
     Dosage: 1D300MG
     Route: 050
  2. ZOFRAN ZOFRAN ZYDIS SMELTTABLET 4MG [Concomitant]
     Dosage: ()
  3. SYMBICORT SYMBICORT TURBUHALER INHALPDR 100/6MCG/DO 120DO [Concomitant]
     Indication: PRODUCT USED FOR UNKNOWN INDICATION
     Dosage: Z.N. ()
     Route: 065
  4. VENTOLIN VENTOLIN  100 AER CFKVR 100MCG/DO SPBS 200DO+INHAL [Concomitant]
     Indication: PRODUCT USED FOR UNKNOWN INDICATION
     Dosage: ()
     Route: 065

REACTIONS (2)
  - Premature labour [Recovered/Resolved]
  - Maternal exposure during pregnancy [Unknown]
